FAERS Safety Report 17572950 (Version 1)
Quarter: 2020Q1

REPORT INFORMATION
  Report Type: Spontaneous
  Country: US (occurrence: US)
  Receive Date: 20200317
  Receipt Date: 20200317
  Transmission Date: 20200409
  Serious: Yes (Death, Hospitalization)
  Sender: FDA-Public Use
  Company Number: None

PATIENT
  Age: 79 Year
  Sex: Male
  Weight: 64 kg

DRUGS (1)
  1. LENALIDOMIDE (CC-5013) [Suspect]
     Active Substance: LENALIDOMIDE
     Dates: end: 20190209

REACTIONS (10)
  - Hepatic lesion [None]
  - Tumour lysis syndrome [None]
  - Tachypnoea [None]
  - Fatigue [None]
  - Febrile neutropenia [None]
  - Tachycardia [None]
  - Back pain [None]
  - Cardio-respiratory arrest [None]
  - Septic shock [None]
  - Acute kidney injury [None]

NARRATIVE: CASE EVENT DATE: 20200203
